FAERS Safety Report 13499689 (Version 1)
Quarter: 2017Q2

REPORT INFORMATION
  Report Type: Spontaneous
  Country: US (occurrence: US)
  Receive Date: 20170501
  Receipt Date: 20170501
  Transmission Date: 20170830
  Serious: Yes (Other)
  Sender: FDA-Public Use
  Company Number: US-AKORN PHARMACEUTICALS-2017AKN00500

PATIENT
  Sex: Female
  Weight: 74.83 kg

DRUGS (1)
  1. MYORISAN [Suspect]
     Active Substance: ISOTRETINOIN
     Indication: ROSACEA
     Dosage: 40 MG, 1X/DAY
     Route: 048
     Dates: start: 201704

REACTIONS (8)
  - Insomnia [Not Recovered/Not Resolved]
  - Feeling abnormal [Not Recovered/Not Resolved]
  - Urticaria [Not Recovered/Not Resolved]
  - Anger [Not Recovered/Not Resolved]
  - Myalgia [Not Recovered/Not Resolved]
  - Rash macular [Not Recovered/Not Resolved]
  - Crying [Unknown]
  - Rash [Not Recovered/Not Resolved]

NARRATIVE: CASE EVENT DATE: 2017
